FAERS Safety Report 6733064-0 (Version None)
Quarter: 2010Q2

REPORT INFORMATION
  Report Type: 
  Country: None (occurrence: None)
  Receive Date: 20100518
  Receipt Date: 20100503
  Transmission Date: 20101027
  Serious: Yes (Life-Threatening, Hospitalization)
  Sender: FDA-Public Use
  Company Number: DSA_43100_2010

PATIENT
  Age: 85 Year
  Sex: Female

DRUGS (12)
  1. ENALAPRIL MALEATE [Suspect]
     Indication: HYPERTENSION
     Dosage: (10 MG BID ORAL)
     Route: 048
     Dates: start: 20050101, end: 20091109
  2. BISOPROLOL FUMARATE [Suspect]
     Indication: HYPERTENSION
     Dosage: (5 MG BID ORAL), (2.5 MG BID ORAL)
     Route: 048
     Dates: start: 20080501, end: 20091111
  3. BISOPROLOL FUMARATE [Suspect]
     Indication: HYPERTENSION
     Dosage: (5 MG BID ORAL), (2.5 MG BID ORAL)
     Route: 048
     Dates: start: 20091112
  4. MOLSIDOMINE (MOLSIDOMINE) [Suspect]
     Indication: CORONARY ARTERY DISEASE
     Dosage: (4 MG BID ORAL), (4 MG QD ORAL)
     Route: 048
     Dates: end: 20091111
  5. MOLSIDOMINE (MOLSIDOMINE) [Suspect]
     Indication: CORONARY ARTERY DISEASE
     Dosage: (4 MG BID ORAL), (4 MG QD ORAL)
     Route: 048
     Dates: start: 20091112
  6. TORSEMIDE [Suspect]
     Indication: RENAL FAILURE CHRONIC
     Dosage: (10 MG BID ORAL), (5 MG QD ORAL)
     Route: 048
     Dates: end: 20091109
  7. TORSEMIDE [Suspect]
     Indication: RENAL FAILURE CHRONIC
     Dosage: (10 MG BID ORAL), (5 MG QD ORAL)
     Route: 048
     Dates: start: 20091113
  8. OXYCODONE [Concomitant]
  9. ASPIRIN [Concomitant]
  10. CALCIUM CARBONATE W/CHOLECALCIFEROL/SODIUM [Concomitant]
  11. BIPHASIC INSULIN INJECTION [Concomitant]
  12. OMEPRAZOLE [Concomitant]

REACTIONS (14)
  - ACUTE PRERENAL FAILURE [None]
  - CONFUSIONAL STATE [None]
  - DEHYDRATION [None]
  - FLUID INTAKE REDUCED [None]
  - GENERAL PHYSICAL HEALTH DETERIORATION [None]
  - HYPOTENSION [None]
  - HYPOVOLAEMIA [None]
  - KIDNEY SMALL [None]
  - MUSCLE CONTRACTIONS INVOLUNTARY [None]
  - PULMONARY CONGESTION [None]
  - RENAL FAILURE ACUTE [None]
  - RESTLESSNESS [None]
  - SKIN DISORDER [None]
  - TONGUE DRY [None]
